FAERS Safety Report 9337795 (Version 1)
Quarter: 2013Q2

REPORT INFORMATION
  Report Type: Spontaneous
  Country: US (occurrence: US)
  Receive Date: 20130607
  Receipt Date: 20130607
  Transmission Date: 20140414
  Serious: Yes (Other)
  Sender: FDA-Public Use
  Company Number: US-ASTRAZENECA-2013SE38639

PATIENT
  Age: 76 Year
  Sex: Female
  Weight: 65.8 kg

DRUGS (3)
  1. CRESTOR [Suspect]
     Indication: BLOOD CHOLESTEROL INCREASED
     Route: 048
  2. CRESTOR [Interacting]
     Indication: BLOOD CHOLESTEROL INCREASED
     Route: 048
     Dates: start: 201305, end: 201305
  3. LETROZOLE [Interacting]
     Indication: BREAST CANCER FEMALE
     Dosage: UNKNOWN
     Dates: start: 20121201

REACTIONS (11)
  - Drug interaction [Unknown]
  - Breast cancer female [Unknown]
  - Weight fluctuation [Unknown]
  - Body height decreased [Unknown]
  - Hair texture abnormal [Not Recovered/Not Resolved]
  - Alopecia [Not Recovered/Not Resolved]
  - Pain [Unknown]
  - Feeling abnormal [Recovered/Resolved]
  - Memory impairment [Unknown]
  - Drug prescribing error [Recovered/Resolved]
  - Incorrect dose administered [Recovered/Resolved]
